FAERS Safety Report 6472951-8 (Version None)
Quarter: 2009Q4

REPORT INFORMATION
  Report Type: 
  Country: None (occurrence: None)
  Receive Date: 20091203
  Receipt Date: 20091119
  Transmission Date: 20100525
  Serious: Yes (Other)
  Sender: FDA-Public Use
  Company Number: GB-MYLANLABS-MK-6032344

PATIENT
  Age: 45 Year
  Sex: Male

DRUGS (5)
  1. TERBINAFINE HCL [Suspect]
     Indication: FUNGAL SKIN INFECTION
     Route: 048
     Dates: start: 20060413, end: 20060525
  2. MOVELAT /00479601/ [Concomitant]
     Indication: DRUG USE FOR UNKNOWN INDICATION
     Dates: start: 20050419
  3. BETNOVATE [Concomitant]
     Indication: DRUG USE FOR UNKNOWN INDICATION
     Dates: start: 20060321
  4. DAKTACORT /00745201/ [Concomitant]
     Indication: DRUG USE FOR UNKNOWN INDICATION
     Dates: start: 20050809
  5. TERBINAFINE HCL [Concomitant]
     Indication: DRUG USE FOR UNKNOWN INDICATION
     Dates: start: 20060413

REACTIONS (1)
  - DISTURBANCE IN ATTENTION [None]
